FAERS Safety Report 16457598 (Version 2)
Quarter: 2019Q3

REPORT INFORMATION
  Report Type: Spontaneous
  Country: JP (occurrence: JP)
  Receive Date: 20190620
  Receipt Date: 20190705
  Transmission Date: 20191004
  Serious: Yes (Hospitalization)
  Sender: FDA-Public Use
  Company Number: JP-TEVA-2019-JP-1066120

PATIENT
  Age: 79 Year
  Sex: Male

DRUGS (7)
  1. TRERIEF [Concomitant]
     Active Substance: ZONISAMIDE
  2. BETANIS [Concomitant]
     Active Substance: MIRABEGRON
  3. AZILECT [Suspect]
     Active Substance: RASAGILINE MESYLATE
     Indication: PARKINSON^S DISEASE
     Dosage: 1 MILLIGRAM DAILY;
     Route: 048
     Dates: start: 20181001
  4. JANUVIA [Concomitant]
     Active Substance: SITAGLIPTIN PHOSPHATE
  5. CILOSTAZOL. [Concomitant]
     Active Substance: CILOSTAZOL
  6. DIOVAN [Concomitant]
     Active Substance: VALSARTAN
  7. AMANTADINE HYDROCHLORIDE. [Concomitant]
     Active Substance: AMANTADINE HYDROCHLORIDE

REACTIONS (2)
  - Blood pressure decreased [Recovered/Resolved]
  - Feeling abnormal [Recovered/Resolved]

NARRATIVE: CASE EVENT DATE: 201906
